FAERS Safety Report 6819500-X (Version None)
Quarter: 2010Q3

REPORT INFORMATION
  Report Type: 
  Country: None (occurrence: None)
  Receive Date: 20100707
  Receipt Date: 20100624
  Transmission Date: 20110219
  Serious: Yes (Other)
  Sender: FDA-Public Use
  Company Number: PHHY2010TR41413

PATIENT
  Age: 65 Year
  Sex: Female
  Weight: 67 kg

DRUGS (5)
  1. DIOVAN [Suspect]
     Dosage: 160 MG
     Route: 048
     Dates: start: 20011228
  2. VASOXEN [Concomitant]
     Indication: HYPERTENSION
     Dosage: 5 MG DAILY
     Route: 048
     Dates: start: 20050427
  3. FLUDEX - SLOW RELEASE [Concomitant]
     Dosage: UNK
     Route: 048
     Dates: start: 20050427
  4. CORASPIN [Concomitant]
     Dosage: UNK
     Route: 048
  5. NOROTROP [Concomitant]
     Dosage: 2400 MG
     Route: 048
     Dates: start: 20050427

REACTIONS (1)
  - BREAST MASS [None]
